FAERS Safety Report 17327406 (Version 1)
Quarter: 2020Q1

REPORT INFORMATION
  Report Type: Spontaneous
  Country: AU (occurrence: AU)
  Receive Date: 20200127
  Receipt Date: 20200127
  Transmission Date: 20200409
  Serious: Yes (Other)
  Sender: FDA-Public Use
  Company Number: NVSC2020AU014971

PATIENT
  Age: 48 Year
  Sex: Female

DRUGS (4)
  1. ZOLADEX [Suspect]
     Active Substance: GOSERELIN ACETATE
     Indication: PRODUCT USED FOR UNKNOWN INDICATION
     Dosage: UNK
     Route: 065
  2. LETROZOLE. [Suspect]
     Active Substance: LETROZOLE
     Indication: PRODUCT USED FOR UNKNOWN INDICATION
     Dosage: UNK
     Route: 065
  3. KISQALI [Suspect]
     Active Substance: RIBOCICLIB
     Indication: PRODUCT USED FOR UNKNOWN INDICATION
     Dosage: UNK
     Route: 065
  4. DENOSUMAB [Suspect]
     Active Substance: DENOSUMAB
     Indication: PRODUCT USED FOR UNKNOWN INDICATION
     Dosage: UNK
     Route: 065

REACTIONS (12)
  - Deep vein thrombosis [Unknown]
  - Lymphadenopathy [Unknown]
  - Erythema [Unknown]
  - Pruritus [Unknown]
  - Ligament sprain [Unknown]
  - Pain [Unknown]
  - Rash pruritic [Unknown]
  - Rash erythematous [Unknown]
  - Arthralgia [Unknown]
  - Skin exfoliation [Unknown]
  - Rash [Unknown]
  - Skin toxicity [Unknown]
